FAERS Safety Report 9131147 (Version 2)
Quarter: 2013Q1

REPORT INFORMATION
  Report Type: Spontaneous
  Country: US (occurrence: US)
  Receive Date: 20130301
  Receipt Date: 20130328
  Transmission Date: 20140127
  Serious: Yes (Hospitalization, Other)
  Sender: FDA-Public Use
  Company Number: US-AMGEN-USASP2013013159

PATIENT
  Age: 73 Year
  Sex: Female
  Weight: 77.1 kg

DRUGS (1)
  1. ENBREL [Suspect]
     Indication: PSORIASIS
     Dosage: 50 MG, 2 TIMES/WK
     Route: 058
     Dates: start: 20050225

REACTIONS (2)
  - Renal cell carcinoma [Recovered/Resolved]
  - Diarrhoea [Not Recovered/Not Resolved]
